FAERS Safety Report 9289924 (Version 3)
Quarter: 2013Q3

REPORT INFORMATION
  Report Type: Report from Study
  Country: US (occurrence: US)
  Receive Date: 20130515
  Receipt Date: 20130729
  Transmission Date: 20140515
  Serious: Yes (Other)
  Sender: FDA-Public Use
  Company Number: US-BAYER-2013-052394

PATIENT
  Sex: Female

DRUGS (3)
  1. STIVARGA [Suspect]
     Indication: COLON CANCER METASTATIC
     Dosage: 160 MG, QD
     Route: 048
     Dates: start: 20130326
  2. STIVARGA [Suspect]
     Indication: COLON CANCER METASTATIC
     Dosage: 120 MG, QD
     Route: 048
     Dates: start: 20130326, end: 20130724
  3. GENTIAN VIOLET [Concomitant]
     Indication: ORAL PAIN

REACTIONS (2)
  - Neuropathy peripheral [Recovering/Resolving]
  - Colon cancer metastatic [None]
